APPROVED DRUG PRODUCT: NAMENDA XR
Active Ingredient: MEMANTINE HYDROCHLORIDE
Strength: 28MG
Dosage Form/Route: CAPSULE, EXTENDED RELEASE;ORAL
Application: N022525 | Product #004
Applicant: ABBVIE INC
Approved: Jun 21, 2010 | RLD: Yes | RS: No | Type: DISCN

PATENTS:
Patent 8039009 | Expires: Mar 24, 2029
Patent 8039009*PED | Expires: Sep 24, 2029